FAERS Safety Report 16807935 (Version 2)
Quarter: 2019Q3

REPORT INFORMATION
  Report Type: Spontaneous
  Country: CN (occurrence: CN)
  Receive Date: 20190915
  Receipt Date: 20190923
  Transmission Date: 20191005
  Serious: Yes (Other)
  Sender: FDA-Public Use
  Company Number: CN-ASTRAZENECA-2019SF28505

PATIENT
  Age: 56 Year
  Sex: Female

DRUGS (1)
  1. IRESSA [Suspect]
     Active Substance: GEFITINIB
     Indication: NON-SMALL CELL LUNG CANCER
     Route: 048
     Dates: start: 201710

REACTIONS (6)
  - Cough [Unknown]
  - Asthenia [Unknown]
  - Drug resistance [Unknown]
  - Nasopharyngitis [Unknown]
  - Vomiting [Unknown]
  - Malignant neoplasm progression [Unknown]
